FAERS Safety Report 8964724 (Version 1)
Quarter: 2012Q4

REPORT INFORMATION
  Report Type: 
  Country: IT (occurrence: IT)
  Receive Date: 20121213
  Receipt Date: 20121213
  Transmission Date: 20130627
  Serious: Yes (Hospitalization)
  Sender: FDA-Public Use
  Company Number: IT-BAYER-2012-130504

PATIENT
  Age: 81 Year
  Sex: Female

DRUGS (7)
  1. CARDIOASPIRIN [Suspect]
     Indication: DVT PROPHYLAXIS
     Dosage: 100 mg, QD
     Route: 048
     Dates: start: 20120101, end: 20121201
  2. CARDIOASPIRIN [Suspect]
     Indication: DVT PROPHYLAXIS
     Dosage: UNK
  3. SERTRALINE [Concomitant]
     Dosage: UNK
     Route: 048
  4. REMERON [Concomitant]
     Dosage: UNK
     Route: 048
  5. VYTORIN [Concomitant]
     Dosage: UNK
     Route: 048
  6. ISMO [Concomitant]
     Dosage: UNK
     Route: 048
  7. TILDIEM [Concomitant]
     Dosage: UNK
     Route: 048

REACTIONS (3)
  - Diarrhoea [Recovering/Resolving]
  - Abdominal pain upper [Recovering/Resolving]
  - Vomiting [Recovering/Resolving]
